FAERS Safety Report 11903336 (Version 1)
Quarter: 2016Q1

REPORT INFORMATION
  Report Type: Spontaneous
  Country: US (occurrence: US)
  Receive Date: 20160110
  Receipt Date: 20160110
  Transmission Date: 20160526
  Serious: Yes (Other)
  Sender: FDA-Public Use
  Company Number: PHEH2016US000542

PATIENT
  Age: 51 Year
  Sex: Male

DRUGS (13)
  1. TEGRETOL [Suspect]
     Active Substance: CARBAMAZEPINE
     Indication: PAIN
     Dosage: 100 MG, BID
     Route: 048
     Dates: start: 20151203, end: 20151204
  2. HYDROCODONE [Suspect]
     Active Substance: HYDROCODONE
     Dosage: 1 DF, (5/325 MG ONCE EVERY 4 TO 6 HOURS AS NEEDED FOR ONE WEEK)
     Route: 048
     Dates: start: 2015, end: 2015
  3. HYDROCODONE [Suspect]
     Active Substance: HYDROCODONE
     Dosage: 1.5 DF, (ONE HALF 10/325 MG EVERY 4 TO 6 HOURS AS NEEDED)
     Route: 048
     Dates: start: 201512
  4. HYDROCODONE [Suspect]
     Active Substance: HYDROCODONE
     Indication: PAIN
     Dosage: 5 MG, BID
     Route: 048
  5. DILAUDID [Suspect]
     Active Substance: HYDROMORPHONE HYDROCHLORIDE
     Indication: PAIN IN EXTREMITY
     Dosage: 1 DF, QD
     Route: 042
     Dates: start: 201511, end: 201511
  6. INSULIN [Concomitant]
     Active Substance: INSULIN NOS
     Indication: PRODUCT USED FOR UNKNOWN INDICATION
     Dosage: UNK
     Route: 065
  7. VYVANSE [Concomitant]
     Active Substance: LISDEXAMFETAMINE DIMESYLATE
     Indication: PRODUCT USED FOR UNKNOWN INDICATION
     Route: 065
  8. NUCYNTA [Suspect]
     Active Substance: TAPENTADOL HYDROCHLORIDE
     Indication: DIABETIC NEUROPATHY
     Dosage: 250 MG, BID
     Route: 048
     Dates: start: 2013
  9. HYDROCODONE [Suspect]
     Active Substance: HYDROCODONE
     Dosage: 10 MG, QID
     Route: 048
  10. WELLBUTRIN [Concomitant]
     Active Substance: BUPROPION HYDROCHLORIDE
     Indication: PRODUCT USED FOR UNKNOWN INDICATION
     Route: 065
  11. HYDROCODONE [Suspect]
     Active Substance: HYDROCODONE
     Dosage: 1 DF, QD (10/325 MG)
     Route: 048
     Dates: start: 20151205, end: 20151205
  12. TYLENOL WITH CODEINE [Concomitant]
     Active Substance: ACETAMINOPHEN\CODEINE PHOSPHATE
     Indication: PAIN IN EXTREMITY
     Dosage: UNK
     Route: 065
  13. VIIBRYD [Concomitant]
     Active Substance: VILAZODONE HYDROCHLORIDE
     Indication: PRODUCT USED FOR UNKNOWN INDICATION
     Dosage: UNK
     Route: 065

REACTIONS (3)
  - Road traffic accident [Recovered/Resolved]
  - Mental impairment [Unknown]
  - Injury [Unknown]

NARRATIVE: CASE EVENT DATE: 20151204
